FAERS Safety Report 8625596-5 (Version None)
Quarter: 2012Q3

REPORT INFORMATION
  Report Type: 
  Country: None (occurrence: None)
  Receive Date: 20120827
  Receipt Date: 20120822
  Transmission Date: 20120928
  Serious: Yes (Hospitalization)
  Sender: FDA-Public Use
  Company Number: US-PFIZER INC-2012206434

PATIENT
  Age: 51 Year
  Sex: Female
  Weight: 79.4 kg

DRUGS (5)
  1. PRISTIQ [Suspect]
     Indication: BIPOLAR DISORDER
     Dosage: 50 MG, DAILY
     Dates: start: 20120816
  2. NEURONTIN [Suspect]
     Indication: BACK PAIN
     Dosage: 300 MG, 2X/DAY
     Dates: start: 20110101
  3. LISINOPRIL AND HYDROCHLOROTHIAZIDE [Concomitant]
     Indication: HYPERTENSION
     Dosage: 20/12.5 MG, DAILY
     Dates: start: 20090101
  4. MELOXICAM [Concomitant]
     Indication: BACK PAIN
     Dosage: 15 MG, DAILY
     Dates: start: 20110101
  5. QUETIAPINE FUMARATE [Concomitant]
     Indication: BIPOLAR DISORDER
     Dosage: 300 MG, DAILY
     Dates: start: 20120816

REACTIONS (4)
  - DEPRESSION [None]
  - SUBSTANCE ABUSE [None]
  - OFF LABEL USE [None]
  - HEADACHE [None]
